FAERS Safety Report 5002034-5 (Version None)
Quarter: 2006Q2

REPORT INFORMATION
  Report Type: 
  Country: None (occurrence: None)
  Receive Date: 20060515
  Receipt Date: 20060502
  Transmission Date: 20061013
  Serious: Yes (Life-Threatening, Hospitalization)
  Sender: FDA-Public Use
  Company Number: PH-MERCK-0605PHL00001

PATIENT
  Sex: Female

DRUGS (5)
  1. ZETIA [Suspect]
     Indication: BLOOD CHOLESTEROL INCREASED
     Route: 048
     Dates: start: 20060410, end: 20060413
  2. AMIODARONE [Concomitant]
     Route: 065
  3. WARFARIN [Concomitant]
     Route: 065
  4. VENLAFAXINE HYDROCHLORIDE [Concomitant]
     Route: 065
  5. CEFUROXIME [Concomitant]
     Route: 065

REACTIONS (4)
  - ALANINE AMINOTRANSFERASE INCREASED [None]
  - ANOREXIA [None]
  - BLOOD CREATININE INCREASED [None]
  - TREMOR [None]
